FAERS Safety Report 7561261-3 (Version None)
Quarter: 2011Q2

REPORT INFORMATION
  Report Type: 
  Country: None (occurrence: None)
  Receive Date: 20110621
  Receipt Date: 20101110
  Transmission Date: 20111010
  Serious: No
  Sender: FDA-Public Use
  Company Number: US-ASTRAZENECA-2010SE53721

PATIENT
  Age: 51 Year
  Sex: Male
  Weight: 72.6 kg

DRUGS (3)
  1. SYMBICORT [Suspect]
     Route: 055
  2. NEXIUM [Suspect]
     Route: 048
  3. PULMICORT FLEXHALER [Suspect]
     Route: 055

REACTIONS (11)
  - OSTEOPENIA [None]
  - PALPITATIONS [None]
  - STRESS [None]
  - VITAMIN B12 DEFICIENCY [None]
  - FLUSHING [None]
  - DRUG INEFFECTIVE [None]
  - APHAGIA [None]
  - ARRHYTHMIA [None]
  - ABDOMINAL DISCOMFORT [None]
  - PAIN [None]
  - TREMOR [None]
